FAERS Safety Report 8000090-3 (Version None)
Quarter: 2011Q4

REPORT INFORMATION
  Report Type: 
  Country: None (occurrence: None)
  Receive Date: 20111220
  Receipt Date: 20111220
  Transmission Date: 20120403
  Serious: Yes (Other)
  Sender: FDA-Public Use
  Company Number: None

PATIENT
  Age: 76 Year
  Sex: Male
  Weight: 66.2252 kg

DRUGS (1)
  1. DALIRESP [Suspect]
     Indication: RESPIRATION ABNORMAL
     Dosage: 1 TABLET PER DAY TOOK FOR 10 DAY
     Dates: start: 20111024, end: 20111102

REACTIONS (12)
  - HEADACHE [None]
  - DECREASED APPETITE [None]
  - IRRITABILITY [None]
  - DEPRESSION [None]
  - NAUSEA [None]
  - ABNORMAL DREAMS [None]
  - MOOD SWINGS [None]
  - NERVOUSNESS [None]
  - ABDOMINAL PAIN UPPER [None]
  - TREMOR [None]
  - DIZZINESS [None]
  - INSOMNIA [None]
